FAERS Safety Report 21186171 (Version 1)
Quarter: 2022Q3

REPORT INFORMATION
  Report Type: Report from Study
  Country: CA (occurrence: CA)
  Receive Date: 20220808
  Receipt Date: 20220808
  Transmission Date: 20221027
  Serious: Yes (Death, Hospitalization, Other)
  Sender: FDA-Public Use
  Company Number: CA-TAKEDA-2022TUS053295

PATIENT
  Age: 62 Year
  Sex: Male

DRUGS (6)
  1. PANTOPRAZOLE SODIUM [Suspect]
     Active Substance: PANTOPRAZOLE SODIUM
     Dosage: 40 MILLIGRAM, QD
     Dates: start: 201002
  2. ENTYVIO [Suspect]
     Active Substance: VEDOLIZUMAB
     Indication: Crohn^s disease
     Dosage: 300 MILLIGRAM
     Route: 042
     Dates: start: 20161220, end: 20220601
  3. B12 [CYANOCOBALAMIN-TANNIN COMPLEX] [Concomitant]
     Dosage: UNK
     Dates: start: 200601
  4. IRON [Concomitant]
     Active Substance: IRON
     Dosage: 300 MILLIGRAM, TID
     Dates: start: 201106
  5. VIT D [VITAMIN D NOS] [Concomitant]
     Dosage: UNK UNK, 1/WEEK
     Dates: start: 201106
  6. FOLIC ACID [Concomitant]
     Active Substance: FOLIC ACID
     Dosage: 5 MILLIGRAM, QD
     Dates: start: 201303

REACTIONS (1)
  - Death [Fatal]

NARRATIVE: CASE EVENT DATE: 20220730
